FAERS Safety Report 6783240-6 (Version None)
Quarter: 2010Q2

REPORT INFORMATION
  Report Type: 
  Country: None (occurrence: None)
  Receive Date: 20100622
  Receipt Date: 20100504
  Transmission Date: 20101027
  Serious: No
  Sender: FDA-Public Use
  Company Number: US-JNJFOC-20100501284

PATIENT
  Sex: Female

DRUGS (5)
  1. INVEGA [Suspect]
     Indication: BIPOLAR DISORDER
     Route: 048
  2. LEXAPRO [Concomitant]
     Indication: DEPRESSION
  3. LODRANE [Concomitant]
     Indication: MULTIPLE ALLERGIES
  4. PROVENTIL GENTLEHALER [Concomitant]
     Indication: ASTHMA
  5. ATARAX [Concomitant]
     Indication: RASH

REACTIONS (4)
  - BREAST DISCHARGE [None]
  - MUSCLE TWITCHING [None]
  - MUSCULOSKELETAL STIFFNESS [None]
  - RASH [None]
